FAERS Safety Report 18706258 (Version 1)
Quarter: 2021Q1

REPORT INFORMATION
  Report Type: Spontaneous
  Country: US (occurrence: US)
  Receive Date: 20210105
  Receipt Date: 20210105
  Transmission Date: 20210419
  Serious: No
  Sender: FDA-Public Use
  Company Number: None

PATIENT
  Age: 74 Year
  Sex: Female

DRUGS (1)
  1. CAPECITABINE TAB 500 MG [Suspect]
     Active Substance: CAPECITABINE
     Route: 048
     Dates: start: 202011

REACTIONS (3)
  - Abdominal pain [None]
  - Gastrooesophageal reflux disease [None]
  - Decreased appetite [None]

NARRATIVE: CASE EVENT DATE: 20201110
